FAERS Safety Report 5292112-8 (Version None)
Quarter: 2007Q2

REPORT INFORMATION
  Report Type: 
  Country: None (occurrence: None)
  Receive Date: 20070403
  Receipt Date: 20070320
  Transmission Date: 20071010
  Serious: Yes (Life-Threatening, Hospitalization, Disabling)
  Sender: FDA-Public Use
  Company Number: GXKR2007GB01925

PATIENT
  Age: 46 Year
  Sex: Male

DRUGS (3)
  1. METFORMIN (NGX) (METFORMIN) [Suspect]
     Indication: DIABETES MELLITUS NON-INSULIN-DEPENDENT
     Dosage: 56 G,
  2. RAMIPRIL [Suspect]
     Indication: HYPERTENSION
     Dosage: 35 MG
  3. ALCOHOL (ETHANOL) [Suspect]
     Dosage: 500 ML

REACTIONS (19)
  - ABDOMINAL PAIN LOWER [None]
  - ALCOHOL USE [None]
  - APNOEA [None]
  - BODY TEMPERATURE DECREASED [None]
  - CARDIAC ARREST [None]
  - COMPARTMENT SYNDROME [None]
  - DIALYSIS [None]
  - DIARRHOEA [None]
  - FASCIOTOMY [None]
  - HYPOTENSION [None]
  - LACTIC ACIDOSIS [None]
  - LEG AMPUTATION [None]
  - METABOLIC ACIDOSIS [None]
  - OVERDOSE [None]
  - PALLOR [None]
  - PARTIAL SEIZURES [None]
  - RHABDOMYOLYSIS [None]
  - SENSORY LOSS [None]
  - SHOCK [None]
